FAERS Safety Report 4444333-1 (Version None)
Quarter: 2004Q3

REPORT INFORMATION
  Report Type: 
  Country: None (occurrence: None)
  Receive Date: 20040729
  Receipt Date: 20030915
  Transmission Date: 20050211
  Serious: Yes (Other)
  Sender: FDA-Public Use
  Company Number: HQWYE712316SEP03

PATIENT
  Age: 16 Year
  Sex: Female
  Weight: 68.1 kg

DRUGS (1)
  1. MINOCYCLINE (MINOCYCLINE, CAPSULE, COATED PELLETS) [Suspect]
     Indication: ACNE
     Dosage: 100 MG TWICE A DAY, ORAL
     Route: 048
     Dates: start: 20011001, end: 20030908

REACTIONS (7)
  - ARTHRALGIA [None]
  - ASPARTATE AMINOTRANSFERASE INCREASED [None]
  - CHILLS [None]
  - JOINT STIFFNESS [None]
  - LIVER FUNCTION TEST ABNORMAL [None]
  - MALAISE [None]
  - WEIGHT DECREASED [None]
